FAERS Safety Report 6347258-X (Version None)
Quarter: 2009Q3

REPORT INFORMATION
  Report Type: 
  Country: None (occurrence: None)
  Receive Date: 20090908
  Receipt Date: 20090908
  Transmission Date: 20100115
  Serious: No
  Sender: FDA-Public Use
  Company Number: None

PATIENT

DRUGS (4)
  1. XIBROM [Suspect]
     Indication: CATARACT OPERATION
     Dosage: 1 DROP TWICE A DAY TOP
     Route: 061
     Dates: start: 20090813, end: 20090813
  2. XIBROM [Suspect]
     Indication: POSTOPERATIVE CARE
     Dosage: 1 DROP TWICE A DAY TOP
     Route: 061
     Dates: start: 20090813, end: 20090813
  3. FLUORMETHOLONE [Suspect]
     Indication: CATARACT OPERATION
     Dosage: 1 DROP THREE TIMES A DAY TOP
     Route: 061
     Dates: start: 20090827, end: 20090830
  4. FLUORMETHOLONE [Suspect]
     Indication: POSTOPERATIVE CARE
     Dosage: 1 DROP THREE TIMES A DAY TOP
     Route: 061
     Dates: start: 20090827, end: 20090830

REACTIONS (6)
  - ACTIVITIES OF DAILY LIVING IMPAIRED [None]
  - BLOOD PRESSURE DECREASED [None]
  - DIZZINESS [None]
  - EYE SWELLING [None]
  - VISION BLURRED [None]
  - VISUAL ACUITY REDUCED [None]
